FAERS Safety Report 4673185-X (Version None)
Quarter: 2005Q2

REPORT INFORMATION
  Report Type: 
  Country: None (occurrence: None)
  Receive Date: 20050525
  Receipt Date: 20000718
  Transmission Date: 20051028
  Serious: Yes (Death)
  Sender: FDA-Public Use
  Company Number: PH-BOEHRINGER INGELHEIM PHARMACEUTICALS, INC.-2000-RP-A0002

PATIENT
  Age: 6 Month

DRUGS (2)
  1. COMBIVENT [Suspect]
     Indication: ADVERSE EVENT
     Route: 055
  2. TERBUTALINE [Concomitant]

REACTIONS (1)
  - PNEUMONIA [None]
